FAERS Safety Report 8002968-3 (Version None)
Quarter: 2011Q4

REPORT INFORMATION
  Report Type: 
  Country: None (occurrence: None)
  Receive Date: 20111222
  Receipt Date: 20110606
  Transmission Date: 20120403
  Serious: No
  Sender: FDA-Public Use
  Company Number: US-GLAXOSMITHKLINE-A0930394A

PATIENT
  Age: 67 Year
  Sex: Male

DRUGS (4)
  1. LIPITOR [Concomitant]
  2. SERTRALINE HYDROCHLORIDE [Concomitant]
  3. VITAMIN D [Concomitant]
  4. AVODART [Suspect]
     Indication: PROSTATOMEGALY
     Dosage: .5MG PER DAY
     Route: 048
     Dates: start: 20110101

REACTIONS (3)
  - POLLAKIURIA [None]
  - FATIGUE [None]
  - ASTHENIA [None]
